FAERS Safety Report 16019064 (Version 1)
Quarter: 2019Q1

REPORT INFORMATION
  Report Type: Report from Study
  Country: GB (occurrence: GB)
  Receive Date: 20190228
  Receipt Date: 20190228
  Transmission Date: 20190418
  Serious: Yes (Other)
  Sender: FDA-Public Use
  Company Number: GB-TEVA-2019-GB-1017259

PATIENT
  Sex: Male

DRUGS (2)
  1. PREDNISOLONE. [Suspect]
     Active Substance: PREDNISOLONE
     Indication: AUTOIMMUNE PANCREATITIS
     Dosage: 1 MG/KG DAILY;
     Route: 065
  2. PREDNISOLONE. [Suspect]
     Active Substance: PREDNISOLONE
     Indication: AUTOIMMUNE PANCREATITIS
     Dosage: .5 MILLIGRAM DAILY;
     Route: 065

REACTIONS (1)
  - Type 2 diabetes mellitus [Unknown]
